FAERS Safety Report 13853466 (Version 1)
Quarter: 2017Q3

REPORT INFORMATION
  Report Type: Spontaneous
  Country: DE (occurrence: DE)
  Receive Date: 20170810
  Receipt Date: 20170810
  Transmission Date: 20171127
  Serious: Yes (Hospitalization)
  Sender: FDA-Public Use
  Company Number: DE-JNJFOC-20170808894

PATIENT
  Sex: Female
  Weight: 75 kg

DRUGS (1)
  1. TRAMAL [Suspect]
     Active Substance: TRAMADOL
     Indication: BACK PAIN
     Route: 065

REACTIONS (8)
  - Cardiac disorder [Recovered/Resolved]
  - Euphoric mood [Recovered/Resolved]
  - Dyspnoea [Recovered/Resolved]
  - Adverse event [Recovered/Resolved]
  - Presyncope [Recovered/Resolved]
  - Anxiety [Recovered/Resolved]
  - Nausea [Recovered/Resolved]
  - Vomiting [Recovered/Resolved]
